FAERS Safety Report 9231536 (Version 1)
Quarter: 2013Q2

REPORT INFORMATION
  Report Type: Spontaneous
  Country: FR (occurrence: FR)
  Receive Date: 20130415
  Receipt Date: 20130415
  Transmission Date: 20140414
  Serious: Yes (Other)
  Sender: FDA-Public Use
  Company Number: FR-GLAXOSMITHKLINE-B0883353A

PATIENT
  Age: 26 Year
  Sex: Female

DRUGS (1)
  1. SORIATANE [Suspect]
     Indication: PSORIASIS
     Dosage: 20MG PER DAY
     Route: 048
     Dates: start: 201204, end: 201204

REACTIONS (2)
  - Abortion induced [Unknown]
  - Maternal exposure before pregnancy [Unknown]
